FAERS Safety Report 5335490-3 (Version None)
Quarter: 2007Q2

REPORT INFORMATION
  Report Type: 
  Country: None (occurrence: None)
  Receive Date: 20070521
  Receipt Date: 20070515
  Transmission Date: 20071010
  Serious: Yes (Other)
  Sender: FDA-Public Use
  Company Number: S07-USA-02097-01

PATIENT
  Sex: Female

DRUGS (1)
  1. AEROBID [Suspect]
     Indication: ASTHMA
     Dates: start: 20070513, end: 20070513

REACTIONS (2)
  - BRONCHIAL OEDEMA [None]
  - CANDIDIASIS [None]
